FAERS Safety Report 4377655-3 (Version None)
Quarter: 2004Q2

REPORT INFORMATION
  Report Type: 
  Country: None (occurrence: None)
  Receive Date: 20040601
  Receipt Date: 20040126
  Transmission Date: 20050107
  Serious: No
  Sender: FDA-Public Use
  Company Number: WAES 0401USA01301

PATIENT
  Age: 65 Year
  Sex: Male
  Weight: 85.7298 kg

DRUGS (9)
  1. ZETIA [Suspect]
     Indication: HYPERCHOLESTEROLAEMIA
     Dosage: 10 MG/DAILY/PO
     Route: 048
     Dates: start: 20030201, end: 20031201
  2. ADVAIR DISKUS 100/50 [Concomitant]
  3. ALTACE [Concomitant]
  4. COMBIVENT [Concomitant]
  5. DIGITEK [Concomitant]
  6. FORADIL [Concomitant]
  7. NEXIUM [Concomitant]
  8. TIAZAC [Concomitant]
  9. FOLIC ACID [Concomitant]

REACTIONS (2)
  - BLOOD CREATINE PHOSPHOKINASE INCREASED [None]
  - MYALGIA [None]
